FAERS Safety Report 8261211-0 (Version None)
Quarter: 2012Q2

REPORT INFORMATION
  Report Type: 
  Country: None (occurrence: None)
  Receive Date: 20120405
  Receipt Date: 20120330
  Transmission Date: 20120825
  Serious: Yes (Life-Threatening)
  Sender: FDA-Public Use
  Company Number: JP-US-EMD SERONO, INC.-7122892

PATIENT
  Sex: Female

DRUGS (2)
  1. PROFASI HP [Suspect]
     Indication: OVULATION INDUCTION
  2. MENOTROPINS [Suspect]
     Indication: OVULATION INDUCTION

REACTIONS (4)
  - WEIGHT DECREASED [None]
  - PREGNANCY [None]
  - ANAEMIA [None]
  - MATERNAL EXPOSURE BEFORE PREGNANCY [None]
